FAERS Safety Report 6534451-6 (Version None)
Quarter: 2009Q4

REPORT INFORMATION
  Report Type: 
  Country: None (occurrence: None)
  Receive Date: 20091228
  Receipt Date: 20090403
  Transmission Date: 20100525
  Serious: Yes (Other)
  Sender: FDA-Public Use
  Company Number: 20090112

PATIENT
  Sex: Female

DRUGS (1)
  1. VENOFER [Suspect]
     Indication: IRON DEFICIENCY ANAEMIA
     Dosage: 500MG / 1000ML NS INTRAVENOUS
     Route: 042
     Dates: start: 20090403

REACTIONS (1)
  - ANAPHYLACTIC REACTION [None]
